FAERS Safety Report 5217800-0 (Version None)
Quarter: 2007Q1

REPORT INFORMATION
  Report Type: 
  Country: None (occurrence: None)
  Receive Date: 20061130
  Receipt Date: 20060720
  Transmission Date: 20070707
  Serious: Yes (Hospitalization)
  Sender: FDA-Public Use
  Company Number: US200607003707

PATIENT
  Sex: Male
  Weight: 74.8 kg

DRUGS (1)
  1. ZYPREXA [Suspect]
     Dosage: UNK

REACTIONS (2)
  - DIABETES MELLITUS [None]
  - DIABETIC NEUROPATHY [None]
